FAERS Safety Report 9214286 (Version 2)
Quarter: 2013Q3

REPORT INFORMATION
  Report Type: Spontaneous
  Country: US (occurrence: US)
  Receive Date: 20130405
  Receipt Date: 20130802
  Transmission Date: 20140515
  Serious: Yes (Hospitalization)
  Sender: FDA-Public Use
  Company Number: US-ABBOTT-13P-163-1070728-00

PATIENT
  Age: 79 Year
  Sex: Female
  Weight: 62.65 kg

DRUGS (13)
  1. VICODIN [Suspect]
     Indication: PAIN
  2. PREMPRO [Suspect]
     Indication: THYROID DISORDER
     Dosage: 0.3/1.5 DAILY AT NIGHT
  3. TRAMADOL [Suspect]
     Indication: PAIN
  4. OXYCODONE [Suspect]
     Indication: PAIN
  5. TYLENOL W/CODEINE NO. 3 [Suspect]
     Indication: PAIN
  6. CARDIZEM [Concomitant]
     Indication: PRODUCT USED FOR UNKNOWN INDICATION
  7. DIAZEPAM [Concomitant]
     Indication: PRODUCT USED FOR UNKNOWN INDICATION
  8. METOPROLOL [Concomitant]
     Indication: CARDIAC DISORDER
  9. METOPROLOL TARTRATE [Concomitant]
     Indication: CARDIAC DISORDER
  10. HYDROCHLOROTHIAZIDE [Concomitant]
     Indication: BLOOD PRESSURE ABNORMAL
  11. WARFARIN [Concomitant]
     Indication: ANTICOAGULANT THERAPY
  12. ZOCOR [Concomitant]
     Indication: PRODUCT USED FOR UNKNOWN INDICATION
  13. UNSPECIFIED MEDICATION [Concomitant]
     Indication: THYROID DISORDER

REACTIONS (11)
  - Arthropathy [Unknown]
  - Feeling abnormal [Recovering/Resolving]
  - Arthritis [Recovering/Resolving]
  - Insomnia [Recovering/Resolving]
  - Malaise [Unknown]
  - Nausea [Unknown]
  - Vomiting [Unknown]
  - Haematocrit abnormal [Unknown]
  - Full blood count decreased [Unknown]
  - Red blood cell count decreased [Unknown]
  - Neutrophil count decreased [Unknown]
